FAERS Safety Report 14814027 (Version 1)
Quarter: 2018Q2

REPORT INFORMATION
  Report Type: Spontaneous
  Country: GB (occurrence: GB)
  Receive Date: 20180426
  Receipt Date: 20180426
  Transmission Date: 20180711
  Serious: Yes (Life-Threatening, Hospitalization, Other)
  Sender: FDA-Public Use
  Company Number: GB-ACCORD-066142

PATIENT
  Age: 18 Year
  Sex: Male

DRUGS (5)
  1. SALICYLATE SODIUM/SALICYLIC ACID/SALICYLIC ACID TRIETHANOLAMINE [Concomitant]
  2. AMITRIPTYLINE [Suspect]
     Active Substance: AMITRIPTYLINE
  3. DIAZEPAM. [Suspect]
     Active Substance: DIAZEPAM
  4. PARACETAMOL [Concomitant]
     Active Substance: ACETAMINOPHEN
  5. NORTRIPTYLINE [Concomitant]
     Active Substance: NORTRIPTYLINE

REACTIONS (9)
  - Agitation [Recovered/Resolved]
  - Brain stem syndrome [Recovered/Resolved]
  - Anxiety [Recovered/Resolved]
  - Generalised tonic-clonic seizure [Recovered/Resolved]
  - Electrocardiogram QRS complex prolonged [Unknown]
  - Coma [Recovered/Resolved]
  - Intentional overdose [Unknown]
  - Respiratory arrest [Unknown]
  - Hallucination [Recovered/Resolved]
